FAERS Safety Report 5820068-5 (Version None)
Quarter: 2008Q3

REPORT INFORMATION
  Report Type: 
  Country: None (occurrence: None)
  Receive Date: 20080724
  Receipt Date: 20080715
  Transmission Date: 20090109
  Serious: Yes (Other)
  Sender: FDA-Public Use
  Company Number: US-JNJFOC-20080703770

PATIENT
  Sex: Female
  Weight: 67.59 kg

DRUGS (6)
  1. REMICADE [Suspect]
     Indication: PSORIATIC ARTHROPATHY
     Route: 042
  2. REMICADE [Suspect]
     Indication: RHEUMATOID ARTHRITIS
     Route: 042
  3. METHOTREXATE [Concomitant]
  4. CHOLESTEROL MEDICATION [Concomitant]
  5. VITAMIN TAB [Concomitant]
  6. ULTRAVATE [Concomitant]

REACTIONS (3)
  - CATARACT [None]
  - OROPHARYNGEAL BLISTERING [None]
  - URINARY TRACT INFECTION [None]
